FAERS Safety Report 6746750-3 (Version None)
Quarter: 2010Q2

REPORT INFORMATION
  Report Type: 
  Country: None (occurrence: None)
  Receive Date: 20100528
  Receipt Date: 20090728
  Transmission Date: 20101027
  Serious: No
  Sender: FDA-Public Use
  Company Number: A0799125A

PATIENT
  Age: 32 Year
  Sex: Male

DRUGS (3)
  1. VENTOLIN [Suspect]
     Dosage: 2PUFF SINGLE DOSE
     Route: 055
     Dates: start: 20090722, end: 20090722
  2. EXCEDRIN (MIGRAINE) [Concomitant]
  3. VICODIN [Concomitant]

REACTIONS (1)
  - AMPHETAMINES POSITIVE [None]
